FAERS Safety Report 8451052-3 (Version None)
Quarter: 2012Q2

REPORT INFORMATION
  Report Type: 
  Country: None (occurrence: None)
  Receive Date: 20120620
  Receipt Date: 20120615
  Transmission Date: 20120825
  Serious: Yes (Other)
  Sender: FDA-Public Use
  Company Number: NL-ROCHE-1076424

PATIENT
  Sex: Male

DRUGS (3)
  1. PEGASYS [Suspect]
     Indication: HEPATITIS C
  2. TELAPREVIR [Suspect]
     Indication: HEPATITIS C
  3. COPEGUS [Suspect]
     Indication: HEPATITIS C

REACTIONS (4)
  - ANAL PRURITUS [None]
  - HAEMORRHOIDS [None]
  - DEPRESSION [None]
  - DERMATITIS [None]
